FAERS Safety Report 4282352-9 (Version None)
Quarter: 2004Q1

REPORT INFORMATION
  Report Type: 
  Country: None (occurrence: None)
  Receive Date: 20040120
  Receipt Date: 20021219
  Transmission Date: 20041129
  Serious: Yes (Hospitalization)
  Sender: FDA-Public Use
  Company Number: NSADSS2001036744

PATIENT
  Age: 28 Year
  Sex: Female
  Weight: 55.7924 kg

DRUGS (1)
  1. COPPER T MODEL TCU 380A [Suspect]
     Indication: INTRA-UTERINE CONTRACEPTIVE DEVICE INSERTION
     Route: 015
     Dates: start: 20011023, end: 20011129

REACTIONS (3)
  - ABDOMINAL PAIN [None]
  - IUCD COMPLICATION [None]
  - VAGINAL HAEMORRHAGE [None]
